FAERS Safety Report 17740177 (Version 6)
Quarter: 2020Q2

REPORT INFORMATION
  Report Type: Spontaneous
  Country: US (occurrence: US)
  Receive Date: 20200504
  Receipt Date: 20200629
  Transmission Date: 20200714
  Serious: No
  Sender: FDA-Public Use
  Company Number: US-PFIZER INC-2020124999

PATIENT
  Age: 69 Year
  Sex: Female
  Weight: 104 kg

DRUGS (3)
  1. CELEBREX [Suspect]
     Active Substance: CELECOXIB
     Indication: LIMB DISCOMFORT
     Dosage: 200 MG, TWICE DAILY
     Route: 048
     Dates: start: 2019
  2. CELEBREX [Suspect]
     Active Substance: CELECOXIB
     Indication: BACK DISORDER
     Dosage: 200 MG, 1X/DAY
     Route: 048
     Dates: start: 2019
  3. CELEBREX [Suspect]
     Active Substance: CELECOXIB
     Indication: MUSCULOSKELETAL DISCOMFORT

REACTIONS (6)
  - Off label use [Unknown]
  - Sensitivity to weather change [Unknown]
  - Fear of disease [Unknown]
  - Product use in unapproved indication [Unknown]
  - Abnormal behaviour [Unknown]
  - Pain [Unknown]

NARRATIVE: CASE EVENT DATE: 2019
